FAERS Safety Report 7714688-0 (Version None)
Quarter: 2011Q3

REPORT INFORMATION
  Report Type: 
  Country: None (occurrence: None)
  Receive Date: 20110829
  Receipt Date: 20110817
  Transmission Date: 20111222
  Serious: Yes (Hospitalization, Other)
  Sender: FDA-Public Use
  Company Number: US-JNJFOC-20110702792

PATIENT
  Sex: Female
  Weight: 52.16 kg

DRUGS (10)
  1. HUMIRA [Interacting]
     Route: 058
     Dates: end: 20110415
  2. APRISO [Interacting]
     Indication: COLITIS ULCERATIVE
     Route: 065
     Dates: end: 20110415
  3. STEROIDS NOS [Concomitant]
     Indication: COLITIS ULCERATIVE
     Route: 065
  4. VITAMINS NOS [Interacting]
     Indication: SUPPLEMENTATION THERAPY
     Route: 065
     Dates: end: 20110415
  5. HUMIRA [Interacting]
     Indication: INFLAMMATORY BOWEL DISEASE
     Dosage: 40 MG/0.8 ML  DOSAGE, LOADING DOSE 160 MG, 80 MG ON DAY 15 AND 40 MG 1 IN 2 WEEKS
     Route: 058
     Dates: start: 20110121, end: 20110121
  6. HUMIRA [Interacting]
     Route: 058
  7. MERCAPTOPURINE [Interacting]
     Route: 065
  8. ORTHO TRI-CYCLEN LO [Suspect]
     Indication: CONTRACEPTION
     Route: 048
     Dates: end: 20110415
  9. MERCAPTOPURINE [Interacting]
     Indication: COLITIS ULCERATIVE
     Route: 065
     Dates: end: 20110415
  10. CODEINE [Interacting]
     Indication: COUGH
     Route: 065
     Dates: start: 20110328

REACTIONS (12)
  - ARTHRALGIA [None]
  - PARANASAL SINUS HYPERSECRETION [None]
  - PRURITUS [None]
  - JOINT SWELLING [None]
  - SKIN DISCOLOURATION [None]
  - INFLAMMATION [None]
  - OROPHARYNGEAL PAIN [None]
  - COLITIS [None]
  - ASTHENIA [None]
  - TUBULOINTERSTITIAL NEPHRITIS [None]
  - DRUG INTERACTION [None]
  - OEDEMA MOUTH [None]
